FAERS Safety Report 4323797-8 (Version None)
Quarter: 2004Q1

REPORT INFORMATION
  Report Type: 
  Country: None (occurrence: None)
  Receive Date: 20040323
  Receipt Date: 20040315
  Transmission Date: 20041129
  Serious: Yes (Other)
  Sender: FDA-Public Use
  Company Number: CIP04000534

PATIENT
  Age: 68 Year
  Sex: Female

DRUGS (2)
  1. ACTONEL [Suspect]
     Indication: OSTEOPOROSIS
     Dosage: 35 MG  ONCE WEEKLY, ORAL
     Route: 048
     Dates: start: 20031206, end: 20031213
  2. LOPRESSOR [Concomitant]

REACTIONS (2)
  - HYPERTENSION [None]
  - TACHYCARDIA [None]
